FAERS Safety Report 8981763 (Version 1)
Quarter: 2012Q4

REPORT INFORMATION
  Report Type: 
  Country: US (occurrence: US)
  Receive Date: 20121212
  Receipt Date: 20121212
  Transmission Date: 20130627
  Serious: Yes (Death)
  Sender: FDA-Public Use
  Company Number: US-ASTELLAS-1113023

PATIENT
  Age: 81 None
  Sex: Male

DRUGS (1)
  1. TARCEVA [Suspect]
     Indication: PRODUCT USED FOR UNKNOWN INDICATION
     Route: 065
     Dates: start: 200505, end: 20050703

REACTIONS (5)
  - Malignant neoplasm progression [Fatal]
  - Rash [Unknown]
  - Hypophagia [Unknown]
  - Fatigue [Unknown]
  - Diarrhoea [Unknown]
